FAERS Safety Report 9386752 (Version 1)
Quarter: 2013Q3

REPORT INFORMATION
  Report Type: Spontaneous
  Country: US (occurrence: US)
  Receive Date: 20130708
  Receipt Date: 20130708
  Transmission Date: 20140515
  Serious: Yes (Other)
  Sender: FDA-Public Use
  Company Number: US-PFIZER INC-2013177149

PATIENT
  Age: 36 Year
  Sex: Male

DRUGS (4)
  1. LYRICA [Suspect]
     Indication: BACK PAIN
     Dosage: 300 MG, 5X/DAY
     Route: 048
  2. LYRICA [Suspect]
     Dosage: 5-6 LYRICA (300MG) PER DAY
  3. OXYCODONE [Concomitant]
     Dosage: UNK
  4. ADDERALL [Concomitant]
     Dosage: UNK

REACTIONS (2)
  - Overdose [Unknown]
  - Drug dependence [Unknown]
